FAERS Safety Report 11680235 (Version 2)
Quarter: 2015Q4

REPORT INFORMATION
  Report Type: Spontaneous
  Country: US (occurrence: US)
  Receive Date: 20151027
  Receipt Date: 20151104
  Transmission Date: 20160304
  Serious: No
  Sender: FDA-Public Use
  Company Number: US-ELI_LILLY_AND_COMPANY-US201005000280

PATIENT
  Age: 53 Year
  Sex: Female

DRUGS (1)
  1. FORTEO [Suspect]
     Active Substance: TERIPARATIDE
     Indication: OSTEOPOROSIS
     Dosage: 20 UG, DAILY (1/D)
     Dates: start: 201002

REACTIONS (9)
  - Abdominal pain upper [Recovered/Resolved]
  - Injection site pain [Unknown]
  - Diarrhoea [Recovered/Resolved]
  - Muscular weakness [Unknown]
  - Influenza [Recovered/Resolved]
  - Weight decreased [Recovered/Resolved]
  - Physiotherapy [Unknown]
  - Dizziness [Unknown]
  - Feeling abnormal [Unknown]

NARRATIVE: CASE EVENT DATE: 20110215
